FAERS Safety Report 6458896-8 (Version None)
Quarter: 2009Q4

REPORT INFORMATION
  Report Type: 
  Country: None (occurrence: None)
  Receive Date: 20091125
  Receipt Date: 20091125
  Transmission Date: 20100525
  Serious: Yes (Other)
  Sender: FDA-Public Use
  Company Number: None

PATIENT
  Age: 50 Year
  Sex: Male
  Weight: 56.6996 kg

DRUGS (1)
  1. FLUOXETINE [Suspect]
     Dosage: 20 MG ONCE QD PO ^YEARS AGO^ PER PT
     Route: 048

REACTIONS (2)
  - DEPRESSION [None]
  - PRODUCT SUBSTITUTION ISSUE [None]
